FAERS Safety Report 5363143-4 (Version None)
Quarter: 2007Q2

REPORT INFORMATION
  Report Type: 
  Country: None (occurrence: None)
  Receive Date: 20070620
  Receipt Date: 20070618
  Transmission Date: 20071010
  Serious: Yes (Hospitalization)
  Sender: FDA-Public Use
  Company Number: FR-SP-E2007-03807

PATIENT
  Age: 16 Year
  Sex: Female

DRUGS (1)
  1. TUBERTEST [Suspect]
     Indication: TUBERCULIN TEST
     Route: 023
     Dates: start: 20070525

REACTIONS (3)
  - HAEMOPTYSIS [None]
  - PRURITUS [None]
  - RASH MACULO-PAPULAR [None]
